FAERS Safety Report 10143157 (Version 2)
Quarter: 2014Q2

REPORT INFORMATION
  Report Type: Report from Study
  Country: FR (occurrence: FR)
  Receive Date: 20140430
  Receipt Date: 20140430
  Transmission Date: 20141212
  Serious: Yes (Life-Threatening, Hospitalization)
  Sender: FDA-Public Use
  Company Number: FR-BAYER-2014-048136

PATIENT
  Age: 64 Year
  Sex: Female
  Weight: 60 kg

DRUGS (12)
  1. PLACEBO [Suspect]
     Indication: SARCOMA METASTATIC
     Dosage: DAILY DOSE 160 MG
     Route: 048
     Dates: start: 20140121, end: 20140227
  2. REGORAFENIB [Suspect]
     Indication: SARCOMA METASTATIC
     Dosage: UNK
     Route: 048
     Dates: start: 20140227
  3. REGORAFENIB [Suspect]
     Indication: SARCOMA METASTATIC
     Dosage: 160 MG
     Route: 048
     Dates: end: 20140320
  4. SEVREDOL [Concomitant]
     Indication: PAIN
     Dosage: TOTAKL DAILY DOSE 10 MG
     Dates: start: 20130801, end: 20140323
  5. OMEPRAZOLE [Concomitant]
     Indication: PROPHYLAXIS
     Dosage: TOTAL DAILY DOSE 20 MG
     Dates: start: 20130801, end: 20140317
  6. ZOLOFT [Concomitant]
     Indication: ANXIETY
     Dosage: UNK
     Dates: start: 2011
  7. STILNOX [Concomitant]
     Indication: SLEEP DISORDER
     Dosage: TOTAL DAILY DOSE 10 MG
     Dates: start: 2011
  8. STILNOX [Concomitant]
     Indication: SLEEP DISORDER
     Dosage: 1 TABLET AT NIGHT
  9. ATARAX [Concomitant]
     Indication: ANXIETY
     Dosage: TOTAL DAIOLY DOSE 25 MG
     Dates: start: 2011
  10. RIVOTRIL [Concomitant]
     Indication: ANXIETY
     Dosage: UNK
     Dates: start: 20140125, end: 20140227
  11. SKENAN [Concomitant]
     Indication: PAIN
     Dosage: TOTAL DAILY DOSE 10 MG
     Dates: start: 20140324
  12. TRAMADOL [Concomitant]
     Indication: PAIN
     Dosage: TOTAL DAILY DOSE 50 MCG
     Dates: start: 201308

REACTIONS (5)
  - Gastrointestinal fistula [Not Recovered/Not Resolved]
  - General physical health deterioration [Not Recovered/Not Resolved]
  - Hypothyroidism [Not Recovered/Not Resolved]
  - Pain [Recovered/Resolved with Sequelae]
  - Pyrexia [Recovered/Resolved with Sequelae]
